FAERS Safety Report 15053220 (Version 1)
Quarter: 2018Q2

REPORT INFORMATION
  Report Type: Report from Study
  Country: US (occurrence: US)
  Receive Date: 20180622
  Receipt Date: 20180622
  Transmission Date: 20180711
  Serious: Yes (Hospitalization)
  Sender: FDA-Public Use
  Company Number: US-ACTELION-A-US2018-173993

PATIENT
  Age: 50 Year
  Sex: Female
  Weight: 65.76 kg

DRUGS (2)
  1. OPSUMIT [Suspect]
     Active Substance: MACITENTAN
     Indication: PULMONARY ARTERIAL HYPERTENSION
     Dosage: 10 MG, QD
     Route: 048
  2. WARFARIN [Concomitant]
     Active Substance: WARFARIN

REACTIONS (4)
  - Headache [Unknown]
  - Lower respiratory tract infection [Unknown]
  - Nasopharyngitis [Unknown]
  - Wheezing [Unknown]
